FAERS Safety Report 25932803 (Version 1)
Quarter: 2025Q4

REPORT INFORMATION
  Report Type: Spontaneous
  Country: CN (occurrence: CN)
  Receive Date: 20251017
  Receipt Date: 20251017
  Transmission Date: 20260117
  Serious: Yes (Hospitalization)
  Sender: ACCORD
  Company Number: CN-Accord-508778

PATIENT
  Age: 44 Year
  Sex: Male

DRUGS (3)
  1. CLOZAPINE [Suspect]
     Active Substance: CLOZAPINE
     Indication: Schizophrenia
     Dates: start: 2008, end: 20240305
  2. LORAZEPAM [Concomitant]
     Active Substance: LORAZEPAM
  3. CLOZAPINE [Suspect]
     Active Substance: CLOZAPINE
     Indication: Schizophrenia
     Dates: start: 20240305, end: 20240312

REACTIONS (1)
  - Withdrawal catatonia [Recovered/Resolved]

NARRATIVE: CASE EVENT DATE: 20240313
